FAERS Safety Report 21624574 (Version 1)
Quarter: 2022Q4

REPORT INFORMATION
  Report Type: Report from Study
  Country: US (occurrence: US)
  Receive Date: 20221121
  Receipt Date: 20221121
  Transmission Date: 20230112
  Serious: Yes (Other)
  Sender: FDA-Public Use
  Company Number: US-ABBVIE-22K-163-4239619-00

PATIENT
  Sex: Male

DRUGS (4)
  1. HUMIRA [Suspect]
     Active Substance: ADALIMUMAB
     Indication: Crohn^s disease
     Dosage: CITRATE FREE?STRENGTH: 40 MILLIGRAM
     Route: 058
  2. HUMIRA [Suspect]
     Active Substance: ADALIMUMAB
     Dosage: CITRATE FREE?STRENGTH: 40 MILLIGRAM
     Route: 058
  3. PFIZER-BIONTECH COVID-19 VACCINE [Concomitant]
     Active Substance: TOZINAMERAN
     Indication: COVID-19 immunisation
     Route: 030
  4. PFIZER-BIONTECH COVID-19 VACCINE [Concomitant]
     Active Substance: TOZINAMERAN
     Indication: COVID-19 immunisation
     Dosage: BOOSTER DOSE
     Route: 030

REACTIONS (13)
  - Pulmonary fibrosis [Not Recovered/Not Resolved]
  - COVID-19 [Recovered/Resolved]
  - Platelet count increased [Unknown]
  - Vision blurred [Unknown]
  - Sinus operation [Recovering/Resolving]
  - Thrombosis [Unknown]
  - Pneumonia [Not Recovered/Not Resolved]
  - Injection site pain [Recovered/Resolved]
  - Nasal congestion [Recovering/Resolving]
  - Pain [Recovering/Resolving]
  - COVID-19 [Recovered/Resolved]
  - Hypopnoea [Unknown]
  - Respiratory tract congestion [Not Recovered/Not Resolved]

NARRATIVE: CASE EVENT DATE: 20220101
